FAERS Safety Report 14682073 (Version 3)
Quarter: 2018Q2

REPORT INFORMATION
  Report Type: Report from Study
  Country: US (occurrence: US)
  Receive Date: 20180326
  Receipt Date: 20180606
  Transmission Date: 20180711
  Serious: Yes (Other)
  Sender: FDA-Public Use
  Company Number: PHEH2018US011569

PATIENT
  Sex: Female

DRUGS (1)
  1. COSENTYX [Suspect]
     Active Substance: SECUKINUMAB
     Indication: ANKYLOSING SPONDYLITIS
     Dosage: 150 MG, QMO
     Route: 058

REACTIONS (9)
  - Ankylosing spondylitis [Unknown]
  - Oropharyngeal pain [Unknown]
  - Weight decreased [Unknown]
  - Gait disturbance [Unknown]
  - Nuchal rigidity [Unknown]
  - Drug ineffective [Unknown]
  - Hypoacusis [Not Recovered/Not Resolved]
  - Dysphagia [Unknown]
  - Movement disorder [Unknown]
